FAERS Safety Report 5955479-0 (Version None)
Quarter: 2008Q4

REPORT INFORMATION
  Report Type: 
  Country: None (occurrence: None)
  Receive Date: 20081112
  Receipt Date: 20081030
  Transmission Date: 20090506
  Serious: Yes (Other)
  Sender: FDA-Public Use
  Company Number: STI-2008-03398

PATIENT
  Age: 35 Year
  Sex: Female

DRUGS (3)
  1. 520A CLARIPEL ACQUAGEL (HYDROQUINONE) (HYDROQUINONE) 4 %, GEL) [Suspect]
     Indication: SKIN HYPERPIGMENTATION
     Dosage: (NIGHT, BEFORE BED, ONCE DAILY, WHOLE FACE
     Dates: start: 20081029
  2. CONTRACEPTIVE [Concomitant]
  3. MEDICATION FOR THYROID DISEASE (THYROID THERAPY) [Concomitant]

REACTIONS (3)
  - COUGH [None]
  - DYSPNOEA [None]
  - ERYTHEMA [None]
